FAERS Safety Report 4804105-2 (Version None)
Quarter: 2005Q4

REPORT INFORMATION
  Report Type: 
  Country: None (occurrence: None)
  Receive Date: 20051014
  Receipt Date: 20050928
  Transmission Date: 20060501
  Serious: Yes (Disabling)
  Sender: FDA-Public Use
  Company Number: 200500111

PATIENT
  Age: 53 Year
  Sex: Male

DRUGS (17)
  1. BOTOX [Suspect]
     Indication: TORTICOLLIS
     Dates: start: 19950101
  2. BOTOX [Suspect]
     Indication: TORTICOLLIS
     Dates: start: 20030101
  3. BOTOX [Suspect]
     Indication: TORTICOLLIS
     Dates: start: 20040101
  4. NEURONTIN [Concomitant]
  5. UNSPECIFIED SKIN LOTION [Concomitant]
  6. PROTONIX [Concomitant]
  7. TERAZOSIN HCL [Concomitant]
  8. PROSCAR [Concomitant]
  9. FLOMAX [Suspect]
  10. KETOCONAZOLE [Concomitant]
  11. LUXIQ [Concomitant]
  12. HYDROCODONE/ACETAMINOPHIN [Concomitant]
  13. OXYCODONE/ACETAMINOPHIN [Concomitant]
  14. PREDNISONE [Concomitant]
  15. ZITHROMAX [Concomitant]
  16. AMOXICILLIN [Concomitant]
  17. OXYCODONE/ACETAMINOPHIN [Concomitant]

REACTIONS (34)
  - ASTHENIA [None]
  - BACK PAIN [None]
  - BENIGN PROSTATIC HYPERPLASIA [None]
  - BLEPHARITIS [None]
  - BLOOD CHOLESTEROL INCREASED [None]
  - BURNING SENSATION [None]
  - DISEASE RECURRENCE [None]
  - DISTURBANCE IN ATTENTION [None]
  - DRUG INEFFECTIVE [None]
  - DYSLIPIDAEMIA [None]
  - EYE IRRITATION [None]
  - EYE PRURITUS [None]
  - FATIGUE [None]
  - HYPOAESTHESIA [None]
  - IMPAIRED DRIVING ABILITY [None]
  - IMPAIRED WORK ABILITY [None]
  - INJURY [None]
  - INTERVERTEBRAL DISC PROTRUSION [None]
  - INTERVERTEBRAL DISC SPACE NARROWING [None]
  - MOBILITY DECREASED [None]
  - MUSCLE SPASMS [None]
  - MUSCLE SPASTICITY [None]
  - MUSCULAR WEAKNESS [None]
  - MUSCULOSKELETAL PAIN [None]
  - NECK PAIN [None]
  - NOCTURIA [None]
  - PAIN IN EXTREMITY [None]
  - PARAESTHESIA [None]
  - ROTATOR CUFF SYNDROME [None]
  - SHOULDER PAIN [None]
  - SOMNOLENCE [None]
  - SPINAL COMPRESSION FRACTURE [None]
  - SPINAL OSTEOARTHRITIS [None]
  - TREMOR [None]
